FAERS Safety Report 5221262-7 (Version None)
Quarter: 2007Q1

REPORT INFORMATION
  Report Type: 
  Country: None (occurrence: None)
  Receive Date: 20070126
  Receipt Date: 20070116
  Transmission Date: 20070707
  Serious: Yes (Other)
  Sender: FDA-Public Use
  Company Number: US-PFIZER INC-2007004625

PATIENT
  Sex: Female
  Weight: 59 kg

DRUGS (6)
  1. CHANTIX [Suspect]
     Indication: SMOKING CESSATION THERAPY
  2. VALIUM [Interacting]
     Indication: SPINAL COLUMN STENOSIS
     Dosage: FREQ:FREQUENCY: PRN
  3. VOLTAREN [Interacting]
     Indication: SPINAL COLUMN STENOSIS
     Dates: start: 20070108, end: 20070108
  4. LEXAPRO [Concomitant]
  5. LIPITOR [Concomitant]
  6. LODINE [Concomitant]

REACTIONS (16)
  - ABDOMINAL DISTENSION [None]
  - BLINDNESS TRANSIENT [None]
  - DECREASED APPETITE [None]
  - DIARRHOEA [None]
  - DRUG INTERACTION [None]
  - EYE SWELLING [None]
  - FAECAL INCONTINENCE [None]
  - FALL [None]
  - GASTROOESOPHAGEAL REFLUX DISEASE [None]
  - HEADACHE [None]
  - INSOMNIA [None]
  - LOSS OF CONSCIOUSNESS [None]
  - NASOPHARYNGITIS [None]
  - NAUSEA [None]
  - PRODUCTIVE COUGH [None]
  - VOMITING [None]
